FAERS Safety Report 8050206-8 (Version None)
Quarter: 2012Q1

REPORT INFORMATION
  Report Type: 
  Country: None (occurrence: None)
  Receive Date: 20120117
  Receipt Date: 20120109
  Transmission Date: 20120608
  Serious: Yes (Other)
  Sender: FDA-Public Use
  Company Number: CHPA2012US000766

PATIENT
  Age: 29 Year
  Sex: Female

DRUGS (1)
  1. EXCEDRIN EXTRA STRENGTH TABLETS [Suspect]
     Indication: HEADACHE
     Dosage: UNK DF, UNK
     Route: 048
     Dates: start: 20111201, end: 20120106

REACTIONS (5)
  - DISORIENTATION [None]
  - MALAISE [None]
  - NAUSEA [None]
  - VOMITING [None]
  - PAIN [None]
